FAERS Safety Report 5989091-4 (Version None)
Quarter: 2008Q4

REPORT INFORMATION
  Report Type: 
  Country: None (occurrence: None)
  Receive Date: 20081210
  Receipt Date: 20080114
  Transmission Date: 20090506
  Serious: No
  Sender: FDA-Public Use
  Company Number: US-AMGEN-KDL260618

PATIENT
  Sex: Female

DRUGS (3)
  1. ENBREL [Suspect]
     Indication: RHEUMATOID ARTHRITIS
     Route: 058
     Dates: start: 19990901
  2. PLAQUENIL [Concomitant]
     Route: 048
     Dates: start: 19840101
  3. METHOTREXATE [Concomitant]
     Route: 048
     Dates: start: 19860101

REACTIONS (3)
  - DYSPNOEA [None]
  - FATIGUE [None]
  - PNEUMONIA [None]
